FAERS Safety Report 21209291 (Version 10)
Quarter: 2022Q4

REPORT INFORMATION
  Report Type: Spontaneous
  Country: CA (occurrence: CA)
  Receive Date: 20220813
  Receipt Date: 20221229
  Transmission Date: 20230113
  Serious: Yes (Other)
  Sender: FDA-Public Use
  Company Number: CA-CELLTRION INC.-2021CA018355

PATIENT

DRUGS (10)
  1. INFLECTRA [Suspect]
     Active Substance: INFLIXIMAB-DYYB
     Indication: Crohn^s disease
     Dosage: 400 MG 0, 2 AND 6, THEN EVERY 4 WEEKS
     Route: 042
     Dates: start: 20211215, end: 20211215
  2. INFLECTRA [Suspect]
     Active Substance: INFLIXIMAB-DYYB
     Dosage: 400 MG 0, 2 AND 6, THEN EVERY 4 WEEKS
     Route: 042
     Dates: start: 20211215
  3. INFLECTRA [Suspect]
     Active Substance: INFLIXIMAB-DYYB
     Dosage: 400 MG, RE-INDUCTION AT Q 0, 2 AND 6 THEN Q 4 WEEKS
     Route: 042
     Dates: start: 20220829
  4. INFLECTRA [Suspect]
     Active Substance: INFLIXIMAB-DYYB
     Dosage: 400 MG, RE-INDUCTION AT Q 0, 2 AND 6 THEN Q 4 WEEKS
     Route: 042
     Dates: start: 20220913
  5. INFLECTRA [Suspect]
     Active Substance: INFLIXIMAB-DYYB
     Dosage: 400 MG, RE-INDUCTION AT Q 0, 2 AND 6 THEN Q 4 WEEKS
     Route: 042
     Dates: start: 20221013
  6. INFLECTRA [Suspect]
     Active Substance: INFLIXIMAB-DYYB
     Dosage: 400 MG, RE-INDUCTION AT Q 0, 2 AND 6 THEN Q 4 WEEKS
     Route: 042
     Dates: start: 20221110
  7. INFLECTRA [Suspect]
     Active Substance: INFLIXIMAB-DYYB
     Dosage: 400 MG, RE-INDUCTION AT Q 0, 2 AND 6 THEN Q 4 WEEKS
     Route: 042
     Dates: start: 20221206
  8. HYDROCORTISONE [Concomitant]
     Active Substance: HYDROCORTISONE
     Indication: Premedication
     Dosage: 100 MG
     Route: 042
     Dates: start: 20211215
  9. PREDNISONE [Concomitant]
     Active Substance: PREDNISONE
     Dosage: 30 MG
     Route: 065
  10. PREDNISONE [Concomitant]
     Active Substance: PREDNISONE
     Dosage: 25 MG
     Route: 065

REACTIONS (14)
  - Condition aggravated [Recovering/Resolving]
  - Anal fissure [Unknown]
  - Cough [Not Recovered/Not Resolved]
  - Blood pressure fluctuation [Unknown]
  - Nasopharyngitis [Not Recovered/Not Resolved]
  - Oropharyngeal pain [Not Recovered/Not Resolved]
  - Pharyngitis streptococcal [Unknown]
  - Abscess [Unknown]
  - Eczema [Unknown]
  - Headache [Unknown]
  - Nausea [Unknown]
  - Off label use [Unknown]
  - Off label use [Unknown]
  - Intentional product use issue [Unknown]

NARRATIVE: CASE EVENT DATE: 20211201
